FAERS Safety Report 5207430-9 (Version None)
Quarter: 2007Q1

REPORT INFORMATION
  Report Type: 
  Country: None (occurrence: None)
  Receive Date: 20070112
  Receipt Date: 20070108
  Transmission Date: 20070707
  Serious: Yes (Death, Hospitalization, Other)
  Sender: FDA-Public Use
  Company Number: PHBS2007BR00671

PATIENT
  Sex: Female

DRUGS (6)
  1. FUROSEMIDE [Concomitant]
     Dosage: 40 MG, UNK
     Route: 048
  2. PROPRANOLOL [Concomitant]
     Dosage: 40 MG, UNK
     Route: 048
  3. SIMVASTATIN [Concomitant]
     Route: 048
  4. AAS [Concomitant]
     Dosage: 100 MG, UNK
     Route: 048
  5. ALLOPURINOL SODIUM [Concomitant]
     Dosage: 10 MG, UNK
  6. APRESOLINE [Suspect]
     Indication: CARDIAC DISORDER
     Dosage: 25 MG, UNK
     Route: 048

REACTIONS (4)
  - HAEMODIALYSIS [None]
  - HIV INFECTION [None]
  - MALAISE [None]
  - RESPIRATORY FAILURE [None]
